FAERS Safety Report 7401816-X (Version None)
Quarter: 2011Q1

REPORT INFORMATION
  Report Type: 
  Country: None (occurrence: None)
  Receive Date: 20110329
  Receipt Date: 20110315
  Transmission Date: 20110831
  Serious: Yes (Hospitalization, Other)
  Sender: FDA-Public Use
  Company Number: 026846

PATIENT
  Sex: Female
  Weight: 70 kg

DRUGS (5)
  1. ALDACTONE [Concomitant]
  2. CIMZIA [Suspect]
     Indication: RHEUMATOID ARTHRITIS
     Dosage: SUBCUTANEOUS
     Route: 058
     Dates: start: 20110127, end: 20110127
  3. AVLOCARDYL [Concomitant]
  4. CORTANCYL [Concomitant]
  5. TANAKAN [Concomitant]

REACTIONS (6)
  - DERMATITIS ALLERGIC [None]
  - HEADACHE [None]
  - ABDOMINAL PAIN [None]
  - BURNING SENSATION [None]
  - SWELLING FACE [None]
  - SKIN PLAQUE [None]
